FAERS Safety Report 9443404 (Version 1)
Quarter: 2013Q3

REPORT INFORMATION
  Report Type: Spontaneous
  Country: ES (occurrence: ES)
  Receive Date: 20130806
  Receipt Date: 20130806
  Transmission Date: 20140515
  Serious: Yes (Other)
  Sender: FDA-Public Use
  Company Number: PHHY2013ES083736

PATIENT
  Age: 65 Year
  Sex: Male
  Weight: 87 kg

DRUGS (4)
  1. EXJADE [Suspect]
     Indication: SUPERFICIAL SIDEROSIS OF CENTRAL NERVOUS SYSTEM
     Dosage: 500 MG (1 TABLET), DAILY
     Route: 048
     Dates: start: 20130523, end: 20130607
  2. EXJADE [Suspect]
     Indication: OFF LABEL USE
  3. ENALAPRIL [Concomitant]
     Dosage: 5 MG, DAILY
     Route: 048
     Dates: start: 20130131
  4. OPTOVITE B12 [Concomitant]
     Dosage: UNK UKN, UNK
     Dates: start: 20130316

REACTIONS (1)
  - Deep vein thrombosis [Recovering/Resolving]
